FAERS Safety Report 23513542 (Version 1)
Quarter: 2024Q1

REPORT INFORMATION
  Report Type: Spontaneous
  Country: US (occurrence: US)
  Receive Date: 20240212
  Receipt Date: 20240212
  Transmission Date: 20240410
  Serious: No
  Sender: FDA-Public Use
  Company Number: US-GLENMARK PHARMACEUTICALS-2024GMK088311

PATIENT

DRUGS (1)
  1. ESTRADIOL [Suspect]
     Active Substance: ESTRADIOL
     Indication: Product used for unknown indication
     Dosage: UNK, TWICE A WEEK
     Route: 067

REACTIONS (4)
  - Feeling abnormal [Unknown]
  - Discomfort [Unknown]
  - Gait disturbance [Unknown]
  - Vulvovaginal swelling [Unknown]
